FAERS Safety Report 4536938-4 (Version None)
Quarter: 2004Q4

REPORT INFORMATION
  Report Type: 
  Country: None (occurrence: None)
  Receive Date: 20041220
  Receipt Date: 20041206
  Transmission Date: 20050328
  Serious: Yes (Hospitalization)
  Sender: FDA-Public Use
  Company Number: SUSI-2004-00865

PATIENT
  Age: 37 Year
  Sex: Male

DRUGS (8)
  1. PENTASA [Suspect]
     Indication: COLITIS ULCERATIVE
     Dosage: 4 G, ORAL
     Route: 048
     Dates: start: 20041015, end: 20041102
  2. MESALAMINE [Suspect]
     Dosage: 1 G, RECTAL
     Route: 054
     Dates: start: 20041015, end: 20041102
  3. SMECTITE (SMECTITE) [Concomitant]
  4. TIORFAN (ACETORPHAN) [Concomitant]
  5. SPASFON (PHLOROGLUCINOL, TRIMETHYLPHLOROGLUCINOL) [Concomitant]
  6. DAFALGAN [Concomitant]
  7. ACETORPHAN (ACETORPHAN) [Concomitant]
  8. SMECTA (VANILLIN, SACCHARIN SODIUM, GLUCOSE MONOHYDRATE) [Concomitant]

REACTIONS (7)
  - CHEST PAIN [None]
  - CYTOLYTIC HEPATITIS [None]
  - HEADACHE [None]
  - MYOCARDITIS [None]
  - NECK PAIN [None]
  - PYREXIA [None]
  - VOMITING [None]
